FAERS Safety Report 9299013 (Version 1)
Quarter: 2013Q2

REPORT INFORMATION
  Report Type: Report from Study
  Country: US (occurrence: US)
  Receive Date: 20130520
  Receipt Date: 20130520
  Transmission Date: 20140414
  Serious: Yes (Hospitalization)
  Sender: FDA-Public Use
  Company Number: US-ASTRAZENECA-2013SE33590

PATIENT
  Age: 25317 Day
  Sex: Female
  Weight: 72.6 kg

DRUGS (11)
  1. CRESTOR [Suspect]
     Indication: BLOOD CHOLESTEROL ABNORMAL
     Route: 048
     Dates: end: 20120926
  2. MORPHINE [Suspect]
     Indication: PAIN
     Route: 065
  3. LIPITOR [Concomitant]
     Indication: BLOOD CHOLESTEROL ABNORMAL
     Dates: start: 2008
  4. TRICOR [Concomitant]
     Indication: BLOOD CHOLESTEROL ABNORMAL
  5. UNSPECIFIED MEDICATION [Concomitant]
     Indication: BLOOD PRESSURE ABNORMAL
  6. UNSPECIFIED MEDICATION [Concomitant]
     Indication: CARDIAC DISORDER
  7. CYMBALTA [Concomitant]
     Indication: BACK PAIN
     Dates: start: 201304
  8. TIZANIDINE [Concomitant]
     Indication: MUSCLE DISORDER
     Dates: start: 201304
  9. SOMA [Concomitant]
     Indication: MUSCLE DISORDER
  10. SYNTHROID [Concomitant]
     Indication: THYROID DISORDER
  11. BABY ASPIRIN [Concomitant]

REACTIONS (8)
  - Joint range of motion decreased [Recovering/Resolving]
  - Muscular weakness [Recovering/Resolving]
  - Sciatica [Recovering/Resolving]
  - Oedema peripheral [Recovering/Resolving]
  - Blister [Recovering/Resolving]
  - Spinal osteoarthritis [Unknown]
  - Rheumatoid arthritis [Unknown]
  - Fibromyalgia [Unknown]
